FAERS Safety Report 10344339 (Version 2)
Quarter: 2014Q3

REPORT INFORMATION
  Report Type: Spontaneous
  Country: ES (occurrence: DE)
  Receive Date: 20140728
  Receipt Date: 20140903
  Transmission Date: 20150326
  Serious: Yes (Other)
  Sender: FDA-Public Use
  Company Number: 2014SP002693

PATIENT
  Age: 47 Year
  Sex: Male

DRUGS (1)
  1. ZEBINIX (ESLICARBAZEPINE ACETATE) [Suspect]
     Active Substance: ESLICARBAZEPINE ACETATE
     Indication: TRIGEMINAL NEURALGIA
     Route: 048
     Dates: start: 20140617, end: 20140708

REACTIONS (2)
  - Haematochezia [Recovered/Resolved]
  - Off label use [None]

NARRATIVE: CASE EVENT DATE: 20140701
